FAERS Safety Report 5366697-7 (Version None)
Quarter: 2007Q2

REPORT INFORMATION
  Report Type: 
  Country: None (occurrence: None)
  Receive Date: 20070622
  Receipt Date: 20060425
  Transmission Date: 20071010
  Serious: No
  Sender: FDA-Public Use
  Company Number: US-ASTRAZENECA-2006UW07421

PATIENT
  Sex: Male

DRUGS (1)
  1. RHINOCORT [Suspect]
     Route: 045
     Dates: start: 20060425

REACTIONS (1)
  - POSTNASAL DRIP [None]
